FAERS Safety Report 25114982 (Version 2)
Quarter: 2025Q2

REPORT INFORMATION
  Report Type: Spontaneous
  Country: DK (occurrence: DK)
  Receive Date: 20250324
  Receipt Date: 20250407
  Transmission Date: 20250716
  Serious: Yes (Other)
  Sender: TEVA
  Company Number: None

PATIENT
  Sex: Female

DRUGS (1)
  1. ISOTRETINOIN [Suspect]
     Active Substance: ISOTRETINOIN
     Indication: Acne
     Route: 065
     Dates: start: 2018

REACTIONS (7)
  - Depression [Unknown]
  - Arthralgia [Unknown]
  - Acne [Unknown]
  - Myalgia [Unknown]
  - Mood swings [Unknown]
  - Fatigue [Unknown]
  - Asthenia [Unknown]
